FAERS Safety Report 18634329 (Version 1)
Quarter: 2020Q4

REPORT INFORMATION
  Report Type: Report from Study
  Country: US (occurrence: US)
  Receive Date: 20201218
  Receipt Date: 20201218
  Transmission Date: 20210114
  Serious: Yes (Death)
  Sender: FDA-Public Use
  Company Number: US-PFIZER INC-2020395067

PATIENT
  Age: 72 Year
  Sex: Female

DRUGS (1)
  1. IBRANCE [Suspect]
     Active Substance: PALBOCICLIB
     Indication: BREAST CANCER FEMALE
     Dosage: 125 MG, CYCLIC (DAILY (DAY 1-21 OF 28 DAY CYCLE))
     Route: 048
     Dates: start: 20201009

REACTIONS (8)
  - Epistaxis [Unknown]
  - Abdominal discomfort [Unknown]
  - Burning sensation [Unknown]
  - Death [Fatal]
  - Blood potassium decreased [Unknown]
  - Decreased appetite [Unknown]
  - Weight decreased [Unknown]
  - White blood cell count decreased [Unknown]

NARRATIVE: CASE EVENT DATE: 2020
